FAERS Safety Report 4554528-4 (Version None)
Quarter: 2004Q4

REPORT INFORMATION
  Report Type: 
  Country: None (occurrence: None)
  Receive Date: 20041227
  Receipt Date: 20041115
  Transmission Date: 20050328
  Serious: No
  Sender: FDA-Public Use
  Company Number: SP00373

PATIENT
  Age: 77 Year
  Sex: Female
  Weight: 61.6892 kg

DRUGS (7)
  1. XIFAXAN [Suspect]
     Indication: OVERGROWTH BACTERIAL
     Dosage: 200MG/DAILY, ORAL
     Route: 048
     Dates: start: 20041109, end: 20041110
  2. PREVACID [Concomitant]
  3. MAALOX MAX [Concomitant]
  4. METOPROLOL [Concomitant]
  5. ENALAPRIL [Concomitant]
  6. AZMACORT [Concomitant]
  7. REGLAN [Concomitant]

REACTIONS (2)
  - CONSTIPATION [None]
  - RASH ERYTHEMATOUS [None]
